FAERS Safety Report 16785631 (Version 1)
Quarter: 2019Q3

REPORT INFORMATION
  Report Type: Spontaneous
  Country: US (occurrence: US)
  Receive Date: 20190909
  Receipt Date: 20190909
  Transmission Date: 20191005
  Serious: No
  Sender: FDA-Public Use
  Company Number: US-PFIZER INC-2019385727

PATIENT
  Age: 58 Year
  Sex: Male
  Weight: 90.72 kg

DRUGS (1)
  1. PREGABALIN. [Suspect]
     Active Substance: PREGABALIN
     Dosage: UNK

REACTIONS (4)
  - Insomnia [Unknown]
  - Drug ineffective [Unknown]
  - Burning sensation [Unknown]
  - Muscle twitching [Unknown]
